FAERS Safety Report 6022053-X (Version None)
Quarter: 2008Q4

REPORT INFORMATION
  Report Type: 
  Country: None (occurrence: None)
  Receive Date: 20081223
  Receipt Date: 20081208
  Transmission Date: 20090506
  Serious: Yes (Hospitalization)
  Sender: FDA-Public Use
  Company Number: KV200801008

PATIENT
  Age: 79 Year
  Sex: Female
  Weight: 77.1 kg

DRUGS (4)
  1. PROPAFENONE HCL [Suspect]
     Indication: HEART RATE IRREGULAR
     Dosage: 300 MG, QD, ORAL
     Route: 048
     Dates: start: 20080101
  2. PROPAFENONE HCL [Suspect]
     Indication: HEART RATE IRREGULAR
     Dosage: 150 MG, BID, ORAL
     Route: 048
     Dates: start: 20050101, end: 20080101
  3. UNSPECIFIED BLLOD PRESSURE [Concomitant]
  4. SPIRIVA [Concomitant]

REACTIONS (7)
  - ASTHENIA [None]
  - BLOOD PRESSURE DECREASED [None]
  - DIZZINESS [None]
  - DRUG INEFFECTIVE [None]
  - FEELING ABNORMAL [None]
  - HEART RATE IRREGULAR [None]
  - PRODUCT QUALITY ISSUE [None]
